FAERS Safety Report 4580202-4 (Version None)
Quarter: 2005Q1

REPORT INFORMATION
  Report Type: 
  Country: None (occurrence: None)
  Receive Date: 20050211
  Receipt Date: 20040428
  Transmission Date: 20050727
  Serious: Yes (Hospitalization)
  Sender: FDA-Public Use
  Company Number: GXKR2004USUS00704

PATIENT
  Age: 51 Year
  Sex: Male
  Weight: 127 kg

DRUGS (9)
  1. ATENOLOL [Suspect]
     Indication: HYPERTENSION
     Dosage: 100 MG
  2. LOSARTAN+HYDROCHLOROTHIAZIDE (NGX) (HYDROCHLOROTHIAZIDE, LOSARTAN) [Suspect]
     Indication: HYPERTENSION
     Dosage: 25 MG
  3. NIFEDIPINE [Suspect]
     Indication: HYPERTENSION
     Dosage: 60 MG
  4. NELFINAVIR(NELFINAVIR) [Suspect]
     Indication: HIV INFECTION
     Dosage: 1250 MG, BID
  5. ABACAVIR(ABACAVIR) [Suspect]
     Indication: HIV INFECTION
     Dosage: 300 MG, BID
  6. RITONAVIR(RITONAVIR) [Suspect]
     Indication: HIV INFECTION
     Dosage: 100 MG, BID
  7. INDINAVIR(INDINAVIR) [Suspect]
     Indication: HIV INFECTION
     Dosage: 800 MG, BID
  8. CLOPIDOGREL BISULFATE [Concomitant]
  9. ACETYLSALICYLIC ACID SRT [Concomitant]

REACTIONS (4)
  - BRADYCARDIA [None]
  - DRUG INTERACTION [None]
  - HYPOKALAEMIA [None]
  - ORTHOSTATIC HYPOTENSION [None]
